FAERS Safety Report 17679331 (Version 1)
Quarter: 2020Q2

REPORT INFORMATION
  Report Type: Report from Study
  Country: US (occurrence: US)
  Receive Date: 20200417
  Receipt Date: 20200417
  Transmission Date: 20200714
  Serious: Yes (Life-Threatening)
  Sender: FDA-Public Use
  Company Number: US-SA-2020SA098939

PATIENT
  Age: 72 Year
  Sex: Female

DRUGS (2)
  1. SARILUMAB [Suspect]
     Active Substance: SARILUMAB
     Indication: CORONAVIRUS INFECTION
     Dosage: REGN88 OR PLACEBO, 200 MG OR 400 MG INTRAVENOUSLY (IV) SINGLE DOSE FOR 1 HOUR, 1X
     Route: 042
     Dates: start: 20200407, end: 20200407
  2. PREDNISONE. [Concomitant]
     Active Substance: PREDNISONE
     Indication: POLYMYALGIA RHEUMATICA
     Dosage: UNK
     Route: 065

REACTIONS (1)
  - Pneumonia pseudomonal [Unknown]

NARRATIVE: CASE EVENT DATE: 20200410
